FAERS Safety Report 4278285-4 (Version None)
Quarter: 2004Q1

REPORT INFORMATION
  Report Type: 
  Country: None (occurrence: None)
  Receive Date: 20040121
  Receipt Date: 20040109
  Transmission Date: 20041129
  Serious: Yes (Death)
  Sender: FDA-Public Use
  Company Number: FR_031203307

PATIENT
  Age: 65 Year
  Sex: Male
  Weight: 57 kg

DRUGS (7)
  1. GEMZAR [Suspect]
     Indication: ADENOCARCINOMA
     Dosage: 2500 MG/M2/OTHER
     Route: 050
     Dates: start: 20030821, end: 20030829
  2. CISPLATIN [Concomitant]
  3. PREVISCAN (FLUINDIONE) [Concomitant]
  4. CORDARONE [Concomitant]
  5. SOLU-MEDROL [Concomitant]
  6. ONDANSETRON HCL [Concomitant]
  7. PRIMPERAN TAB [Concomitant]

REACTIONS (9)
  - BIOPSY LIVER ABNORMAL [None]
  - CYTOLYTIC HEPATITIS [None]
  - HAEMATEMESIS [None]
  - HEPATIC ENCEPHALOPATHY [None]
  - HEPATIC FAILURE [None]
  - HEPATITIS ACUTE [None]
  - HEPATORENAL SYNDROME [None]
  - NERVOUS SYSTEM DISORDER [None]
  - PROTHROMBIN TIME ABNORMAL [None]
